FAERS Safety Report 4448619-6 (Version None)
Quarter: 2004Q3

REPORT INFORMATION
  Report Type: 
  Country: None (occurrence: None)
  Receive Date: 20040730
  Receipt Date: 20031117
  Transmission Date: 20050211
  Serious: Yes (Other)
  Sender: FDA-Public Use
  Company Number: 2003-11-1534

PATIENT
  Age: 29 Year
  Sex: Male

DRUGS (3)
  1. INTRON A [Suspect]
     Indication: MALIGNANT MELANOMA STAGE III
     Dosage: 20 MIU/M^2 INTRAVENOUS
     Route: 042
     Dates: start: 20031101
  2. LEVOXYL [Concomitant]
  3. ZYRTEC [Concomitant]

REACTIONS (3)
  - FATIGUE [None]
  - HYPOTENSION [None]
  - SINUS BRADYCARDIA [None]
